FAERS Safety Report 6010110-3 (Version None)
Quarter: 2008Q4

REPORT INFORMATION
  Report Type: 
  Country: None (occurrence: None)
  Receive Date: 20081218
  Receipt Date: 20081216
  Transmission Date: 20090506
  Serious: Yes (Other)
  Sender: FDA-Public Use
  Company Number: NL-BAYER-200832701GPV

PATIENT
  Age: 71 Year
  Sex: Male

DRUGS (16)
  1. NEXAVAR [Suspect]
     Indication: HEPATIC NEOPLASM MALIGNANT
     Dosage: TOTAL DAILY DOSE: 400 MG
     Route: 048
     Dates: start: 20081023, end: 20081120
  2. NEXAVAR [Suspect]
     Dosage: TOTAL DAILY DOSE: 200 MG
     Route: 048
     Dates: start: 20081215
  3. NEXAVAR [Suspect]
     Route: 048
     Dates: start: 20081120, end: 20081215
  4. ATENOLOL [Concomitant]
     Indication: HYPERTENSION
     Dosage: TOTAL DAILY DOSE: 25 MG
     Route: 048
     Dates: start: 20081215
  5. ATENOLOL [Concomitant]
     Dosage: TOTAL DAILY DOSE: 50 MG
     Route: 048
     Dates: end: 20081215
  6. TEMAZEPAM [Concomitant]
     Indication: SEDATION
     Dosage: TOTAL DAILY DOSE: 20 MG
     Route: 048
  7. DIAZEPAM [Concomitant]
     Indication: HYPOTONIA
     Dosage: TOTAL DAILY DOSE: 7.5 MG
     Route: 048
  8. NITROGLYCERIN [Concomitant]
     Indication: CARDIAC DISORDER
     Route: 060
  9. CARBASALATE CALCIUM [Concomitant]
     Indication: HYPERTENSION
     Dosage: TOTAL DAILY DOSE: 100 MG
     Route: 048
  10. DILTIAZEM HCL [Concomitant]
     Indication: CARDIAC DISORDER
     Dosage: TOTAL DAILY DOSE: 200 MG
     Route: 048
  11. TAMSULOSINE [Concomitant]
     Indication: HYPERTONIC BLADDER
     Dosage: TOTAL DAILY DOSE: 0.4 MG
     Route: 048
  12. PRAVASTATIN [Concomitant]
     Indication: INCONTINENCE
     Dosage: TOTAL DAILY DOSE: 40 MG
     Route: 048
  13. APROVEL [Concomitant]
     Indication: HYPERTENSION
     Dosage: TOTAL DAILY DOSE: 300 MG
     Route: 048
     Dates: end: 20081215
  14. APROVEL [Concomitant]
     Dosage: TOTAL DAILY DOSE: 150 MG
     Route: 048
     Dates: start: 20081215
  15. SERETIDE DISKUS [Concomitant]
     Indication: ASTHMA
     Route: 065
  16. PANADOL CODEINE [Concomitant]
     Indication: PAIN MANAGEMENT
     Route: 065

REACTIONS (8)
  - ARTHRALGIA [None]
  - ASTHENIA [None]
  - DIARRHOEA [None]
  - FATIGUE [None]
  - HYPOTENSION [None]
  - NAUSEA [None]
  - PAIN IN EXTREMITY [None]
  - URINARY RETENTION [None]
